FAERS Safety Report 13670417 (Version 1)
Quarter: 2017Q2

REPORT INFORMATION
  Report Type: Spontaneous
  Country: DE (occurrence: DE)
  Receive Date: 20170620
  Receipt Date: 20170620
  Transmission Date: 20170830
  Serious: Yes (Hospitalization, Other)
  Sender: FDA-Public Use
  Company Number: DE-SA-2017SA106554

PATIENT
  Age: 26 Year
  Sex: Female

DRUGS (10)
  1. METHOTREXATE. [Suspect]
     Active Substance: METHOTREXATE
     Indication: RHEUMATOID ARTHRITIS
     Route: 065
     Dates: start: 201602
  2. LEFLUNOMIDE. [Suspect]
     Active Substance: LEFLUNOMIDE
     Indication: RHEUMATOID ARTHRITIS
     Route: 065
     Dates: start: 2016
  3. PREDNISONE. [Suspect]
     Active Substance: PREDNISONE
     Indication: RHEUMATOID ARTHRITIS
     Dosage: TAPERED DOSE
     Route: 065
     Dates: start: 2016, end: 2016
  4. PREDNISONE. [Suspect]
     Active Substance: PREDNISONE
     Indication: RHEUMATOID ARTHRITIS
     Route: 065
     Dates: start: 201602
  5. ROXITHROMYCIN [Suspect]
     Active Substance: ROXITHROMYCIN
     Indication: URINARY TRACT INFECTION
     Route: 065
     Dates: start: 201512
  6. PREDNISONE. [Suspect]
     Active Substance: PREDNISONE
     Indication: RHEUMATOID ARTHRITIS
     Route: 065
     Dates: start: 2016, end: 2016
  7. ROXITHROMYCIN [Suspect]
     Active Substance: ROXITHROMYCIN
     Indication: UPPER RESPIRATORY TRACT INFECTION
     Route: 065
     Dates: start: 201512
  8. PREDNISONE. [Suspect]
     Active Substance: PREDNISONE
     Indication: RHEUMATOID ARTHRITIS
     Route: 065
     Dates: start: 201601
  9. PREDNISONE. [Suspect]
     Active Substance: PREDNISONE
     Indication: RHEUMATOID ARTHRITIS
     Route: 065
     Dates: start: 2016, end: 2016
  10. FOSFOMYCIN [Concomitant]
     Active Substance: FOSFOMYCIN
     Dates: start: 2016

REACTIONS (18)
  - Histiocytosis haematophagic [Recovering/Resolving]
  - Rash [Unknown]
  - Dermatitis allergic [Unknown]
  - Transaminases increased [Recovered/Resolved]
  - Rheumatoid arthritis [Unknown]
  - Hepatosplenomegaly [Recovering/Resolving]
  - Arthralgia [Unknown]
  - Rebound effect [Unknown]
  - Hyperferritinaemia [Recovering/Resolving]
  - Blood lactate dehydrogenase increased [Recovering/Resolving]
  - Pyrexia [Recovered/Resolved]
  - Hepatic steatosis [Recovering/Resolving]
  - Hypofibrinogenaemia [Recovering/Resolving]
  - Liver disorder [Recovering/Resolving]
  - Hepatitis [Recovering/Resolving]
  - Histiocytosis haematophagic [Recovering/Resolving]
  - Cytopenia [Recovering/Resolving]
  - Lymphadenopathy [Recovering/Resolving]

NARRATIVE: CASE EVENT DATE: 2016
